FAERS Safety Report 9863943 (Version 1)
Quarter: 2014Q1

REPORT INFORMATION
  Report Type: Spontaneous
  Country: JP (occurrence: JP)
  Receive Date: 20140203
  Receipt Date: 20140203
  Transmission Date: 20141002
  Serious: Yes (Other)
  Sender: FDA-Public Use
  Company Number: JP-WATSON-2014-01223

PATIENT
  Age: 38 Year
  Sex: Female

DRUGS (2)
  1. PROGESTERONE (UNKNOWN) [Suspect]
     Indication: PROGESTIN REPLACEMENT THERAPY
     Dosage: 800 MG, DAILY
     Route: 067
     Dates: start: 20131120, end: 20131210
  2. PREMARIN [Concomitant]
     Indication: PRODUCT USED FOR UNKNOWN INDICATION
     Dosage: UNK
     Route: 048
     Dates: start: 20131108, end: 20131210

REACTIONS (1)
  - Vulvovaginal candidiasis [Recovering/Resolving]
